FAERS Safety Report 5595245-1 (Version None)
Quarter: 2008Q1

REPORT INFORMATION
  Report Type: 
  Country: None (occurrence: None)
  Receive Date: 20080117
  Receipt Date: 20080108
  Transmission Date: 20080703
  Serious: Yes (Other)
  Sender: FDA-Public Use
  Company Number: US-PFIZER INC-2007078468

PATIENT
  Age: 82 Year
  Sex: Male
  Weight: 74.8 kg

DRUGS (4)
  1. LIPITOR [Suspect]
  2. ADVAIR DISKUS 100/50 [Concomitant]
  3. ASPIRIN [Concomitant]
  4. VITAMIN CAP [Concomitant]

REACTIONS (2)
  - BILE DUCT STONE [None]
  - CHOLECYSTITIS ACUTE [None]
